FAERS Safety Report 7417151-X (Version None)
Quarter: 2011Q2

REPORT INFORMATION
  Report Type: 
  Country: None (occurrence: None)
  Receive Date: 20110415
  Receipt Date: 20101110
  Transmission Date: 20111010
  Serious: Yes (Hospitalization)
  Sender: FDA-Public Use
  Company Number: US-BAYER-201038470NA

PATIENT
  Age: 24 Year
  Sex: Female
  Weight: 90.703 kg

DRUGS (5)
  1. YASMIN [Suspect]
     Indication: ACNE
     Dosage: UNK
     Dates: start: 20020101, end: 20050101
  2. YASMIN [Suspect]
     Indication: PREMENSTRUAL SYNDROME
  3. ASCORBIC ACID [Concomitant]
  4. IBUPROFEN [Concomitant]
  5. ALBUTEROL [Concomitant]

REACTIONS (5)
  - INJURY [None]
  - GALLBLADDER DISORDER [None]
  - CHOLELITHIASIS [None]
  - PANCREATITIS [None]
  - CHOLECYSTITIS CHRONIC [None]
